FAERS Safety Report 17451095 (Version 1)
Quarter: 2020Q1

REPORT INFORMATION
  Report Type: Spontaneous
  Country: US (occurrence: US)
  Receive Date: 20200210
  Receipt Date: 20200210
  Transmission Date: 20200409
  Serious: No
  Sender: FDA-Public Use
  Company Number: None

PATIENT
  Age: 60 Year
  Sex: Female

DRUGS (12)
  1. MELOXICAM. [Concomitant]
     Active Substance: MELOXICAM
  2. NIFEDIL [Concomitant]
  3. OCALIVA [Suspect]
     Active Substance: OBETICHOLIC ACID
     Indication: PRIMARY BILIARY CHOLANGITIS
     Route: 048
     Dates: start: 20170131
  4. TRIAMT [Concomitant]
  5. NALTREXONE [Concomitant]
     Active Substance: NALTREXONE
  6. MYDCOPHENOLATE [Concomitant]
  7. IRON [Concomitant]
     Active Substance: IRON
  8. OMEPRAZOLE. [Concomitant]
     Active Substance: OMEPRAZOLE
  9. CETIRIZINE [Concomitant]
     Active Substance: CETIRIZINE HYDROCHLORIDE
  10. URSODIOL. [Concomitant]
     Active Substance: URSODIOL
  11. SILDNEAFIL [Concomitant]
  12. CEVIMELIN [Concomitant]

REACTIONS (4)
  - Gastroenteritis viral [None]
  - Ill-defined disorder [None]
  - Therapy cessation [None]
  - Gastrointestinal disorder [None]

NARRATIVE: CASE EVENT DATE: 20200131
